FAERS Safety Report 24564381 (Version 1)
Quarter: 2024Q4

REPORT INFORMATION
  Report Type: Spontaneous
  Country: GB (occurrence: GB)
  Receive Date: 20241030
  Receipt Date: 20241030
  Transmission Date: 20250114
  Serious: Yes (Disabling, Other)
  Sender: MSN LABORATORIES PRIVATE LIMITED
  Company Number: None

PATIENT

DRUGS (1)
  1. ATORVASTATIN [Suspect]
     Active Substance: ATORVASTATIN
     Indication: Product used for unknown indication
     Dosage: 40MG IN THE MORNING
     Route: 065
     Dates: end: 20241021

REACTIONS (3)
  - Choking [Unknown]
  - Myasthenia gravis [Recovering/Resolving]
  - Dysphagia [Unknown]
